FAERS Safety Report 8302149-X (Version None)
Quarter: 2012Q1

REPORT INFORMATION
  Report Type: 
  Country: None (occurrence: None)
  Receive Date: 20120326
  Receipt Date: 20110131
  Transmission Date: 20120608
  Serious: Yes (Other)
  Sender: FDA-Public Use
  Company Number: PHHY2011US03983

PATIENT
  Age: 77 Year
  Sex: Male

DRUGS (13)
  1. ALLOPURINOL [Concomitant]
  2. ZOCOR [Concomitant]
  3. LASIX [Concomitant]
  4. KLOR-CON [Concomitant]
  5. DORZOLAMIDE [Concomitant]
  6. MOTRIN [Concomitant]
  7. TRAMADOL HCL [Concomitant]
  8. TASIGNA [Suspect]
     Indication: CHRONIC MYELOID LEUKAEMIA
     Dosage: 300 MG, BID, ORAL ; 150 MG, DAILY, ORAL ; 150 MG, BID, ORAL
     Route: 048
     Dates: start: 20101103
  9. TASIGNA [Suspect]
     Indication: CHRONIC MYELOID LEUKAEMIA
     Dosage: 300 MG, BID, ORAL ; 150 MG, DAILY, ORAL ; 150 MG, BID, ORAL
     Route: 048
     Dates: start: 20100901
  10. TRAVASOL (AMINO ACIDS NOS) [Concomitant]
  11. AMLODIPINE [Concomitant]
  12. PROBENECID [Concomitant]
  13. HYDROXYUREA (HYROXYCARBAMIDE) [Concomitant]

REACTIONS (6)
  - PRURITUS [None]
  - BLISTER [None]
  - FLUID RETENTION [None]
  - OEDEMA PERIPHERAL [None]
  - WEIGHT INCREASED [None]
  - BLOOD PRESSURE INCREASED [None]
